FAERS Safety Report 21408969 (Version 1)
Quarter: 2022Q4

REPORT INFORMATION
  Report Type: Spontaneous
  Country: US (occurrence: US)
  Receive Date: 20221004
  Receipt Date: 20221004
  Transmission Date: 20230112
  Serious: No
  Sender: FDA-Public Use
  Company Number: US-SA-SAC20220930001353

PATIENT
  Age: 7 Year
  Sex: Female

DRUGS (2)
  1. DUPIXENT [Suspect]
     Active Substance: DUPILUMAB
     Indication: Dermatitis atopic
     Dosage: 300 MG
     Route: 058
     Dates: start: 20220503
  2. BETAMETH DIPROPIONATE [Concomitant]

REACTIONS (3)
  - Eczema [Recovered/Resolved]
  - Injection site erythema [Unknown]
  - Injection site mass [Recovered/Resolved]

NARRATIVE: CASE EVENT DATE: 20220901
